FAERS Safety Report 7408806 (Version 4)
Quarter: 2015Q4

REPORT INFORMATION
  Report Type: Report from Study
  Country: BE (occurrence: BE)
  Receive Date: 20100603
  Receipt Date: 20151223
  Transmission Date: 20160305
  Serious: Yes (Death, Life-Threatening, Hospitalization, Other)
  Sender: FDA-Public Use
  Company Number: BE-PFIZER INC-2010065952

PATIENT
  Age: 72 Year
  Sex: Male
  Weight: 87.9 kg

DRUGS (19)
  1. GLICLAZIDE [Concomitant]
     Active Substance: GLICLAZIDE
     Dosage: UNK
     Dates: start: 2004
  2. BISOPROLOL FUMARATE/HYDROCHLOROTHIAZIDE [Concomitant]
     Dosage: UNK
     Dates: start: 20091118
  3. BIOFENAC ^UCB^ [Concomitant]
     Dosage: UNK
  4. LASIX [Concomitant]
     Active Substance: FUROSEMIDE
     Dosage: UNK
  5. DESFERAL [Concomitant]
     Active Substance: DEFEROXAMINE MESYLATE
     Dosage: UNK
  6. MEDROL [Suspect]
     Active Substance: METHYLPREDNISOLONE
     Indication: MYALGIA
     Dosage: 16 MG, 1X/DAY
     Route: 048
     Dates: start: 20100301
  7. HYDREA [Concomitant]
     Active Substance: HYDROXYUREA
  8. DAFALGAN [Concomitant]
     Active Substance: ACETAMINOPHEN
     Dosage: UNK
  9. FLEXIUM [Concomitant]
     Dosage: UNK
  10. DICLOFENAC [Concomitant]
     Active Substance: DICLOFENAC
     Dosage: UNK
  11. DIOVAN [Concomitant]
     Active Substance: VALSARTAN
     Dosage: UNK
     Dates: start: 2004
  12. NEORECORMON ^BOEHRINGER MANNHEIM^ [Concomitant]
     Dosage: UNK
     Dates: end: 20100305
  13. TETRAZEPAM [Concomitant]
     Active Substance: TETRAZEPAM
     Dosage: UNK
  14. KAMOL [Concomitant]
     Dosage: UNK
     Dates: start: 20100212
  15. AUGMENTIN [Concomitant]
     Active Substance: AMOXICILLIN\CLAVULANATE POTASSIUM
  16. ALLOPURINOL. [Concomitant]
     Active Substance: ALLOPURINOL
     Dosage: UNK
     Dates: start: 2005
  17. APOCARD [Concomitant]
     Active Substance: FLECAINIDE ACETATE
     Dosage: UNK
     Dates: start: 20080402
  18. MAGNESIUM [Concomitant]
     Active Substance: MAGNESIUM
     Dosage: UNK
  19. ASAFLOW [Concomitant]
     Active Substance: ASPIRIN
     Dosage: UNK
     Dates: start: 1979

REACTIONS (3)
  - Polyneuropathy [Unknown]
  - Acute kidney injury [Unknown]
  - Respiratory tract infection [Fatal]

NARRATIVE: CASE EVENT DATE: 20100310
